FAERS Safety Report 9607446 (Version 2)
Quarter: 2013Q4

REPORT INFORMATION
  Report Type: Spontaneous
  Country: US (occurrence: None)
  Receive Date: 20131007
  Receipt Date: 20131125
  Transmission Date: 20140711
  Serious: Yes (Other)
  Sender: FDA-Public Use
  Company Number: 1310-1261

PATIENT
  Age: 20 Year
  Sex: Female
  Weight: 63.5 kg

DRUGS (2)
  1. ARCALYST [Suspect]
     Indication: MUCKLE-WELLS SYNDROME
  2. EYE DROPS (TETRYZOLINE HYDROCHLORIDE) [Concomitant]

REACTIONS (5)
  - Foetal death [None]
  - Vaginal haemorrhage [None]
  - Abdominal pain [None]
  - Pregnancy [None]
  - Exposure during pregnancy [None]
